FAERS Safety Report 4475432-6 (Version None)
Quarter: 2004Q4

REPORT INFORMATION
  Report Type: 
  Country: None (occurrence: None)
  Receive Date: 20041014
  Receipt Date: 20041014
  Transmission Date: 20050328
  Serious: Yes (Other)
  Sender: FDA-Public Use
  Company Number: None

PATIENT
  Age: 66 Year
  Sex: Female
  Weight: 57.9243 kg

DRUGS (1)
  1. FOSAMAX [Suspect]
     Indication: OSTEOPENIA
     Dosage: 70 PO Q WEEK
     Route: 048
     Dates: start: 20031101, end: 20040501

REACTIONS (2)
  - ARTHRITIS [None]
  - MUSCLE CRAMP [None]
